FAERS Safety Report 4606643-4 (Version None)
Quarter: 2005Q2

REPORT INFORMATION
  Report Type: 
  Country: None (occurrence: None)
  Receive Date: 20050223
  Receipt Date: 20040316
  Transmission Date: 20051028
  Serious: Yes (Other)
  Sender: FDA-Public Use
  Company Number: WAES 0403USA01408

PATIENT
  Age: 76 Year
  Sex: Female

DRUGS (7)
  1. ZOCOR [Suspect]
     Dosage: SEE IMAGE
     Route: 048
     Dates: end: 20031124
  2. ZOCOR [Suspect]
     Dosage: SEE IMAGE
     Route: 048
     Dates: start: 20031125, end: 20040219
  3. ZOCOR [Suspect]
     Dosage: SEE IMAGE
     Route: 048
     Dates: start: 20031126, end: 20040220
  4. DIOVAN [Concomitant]
  5. PROCARDIA XL [Concomitant]
  6. TOPROL-XL [Concomitant]
  7. ASPIRIN [Concomitant]

REACTIONS (1)
  - POLYMYALGIA RHEUMATICA [None]
